FAERS Safety Report 5382105-4 (Version None)
Quarter: 2007Q3

REPORT INFORMATION
  Report Type: 
  Country: None (occurrence: None)
  Receive Date: 20070709
  Receipt Date: 20070627
  Transmission Date: 20080115
  Serious: Yes (Hospitalization, Other)
  Sender: FDA-Public Use
  Company Number: US-ROCHE-485880

PATIENT
  Age: 21 Year
  Sex: Male
  Weight: 90.7 kg

DRUGS (3)
  1. ACCUTANE [Suspect]
     Indication: ACNE
     Route: 048
     Dates: start: 19980901, end: 19990201
  2. ACCUTANE [Suspect]
     Route: 048
     Dates: start: 20000103, end: 20000503
  3. DESONIDE [Concomitant]
     Route: 061
     Dates: start: 20000103

REACTIONS (6)
  - CLOSTRIDIUM DIFFICILE COLITIS [None]
  - COLITIS ULCERATIVE [None]
  - CROHN'S DISEASE [None]
  - ENAMEL ANOMALY [None]
  - INFLAMMATORY BOWEL DISEASE [None]
  - PSEUDOMEMBRANOUS COLITIS [None]
